FAERS Safety Report 14531896 (Version 1)
Quarter: 2018Q1

REPORT INFORMATION
  Report Type: Spontaneous
  Country: US (occurrence: US)
  Receive Date: 20180214
  Receipt Date: 20180214
  Transmission Date: 20180509
  Serious: Yes (Life-Threatening, Hospitalization, Disabling, Other)
  Sender: FDA-Public Use
  Company Number: None

PATIENT
  Age: 28 Year
  Sex: Male
  Weight: 86.18 kg

DRUGS (10)
  1. MULTIVITAMINS [Concomitant]
     Active Substance: VITAMINS
  2. GINKO BILOBA [Concomitant]
     Active Substance: GINKGO
  3. MINERALS [Concomitant]
     Active Substance: MINERALS
  4. CANNABIS [Concomitant]
     Active Substance: CANNABIS SATIVA SUBSP. INDICA TOP
  5. MILK THISTLE [Concomitant]
     Active Substance: DIETARY SUPPLEMENT\HERBALS\MILK THISTLE
  6. VITAMINS [Concomitant]
     Active Substance: VITAMINS
  7. CINNAMON W/CHROMIUM [Concomitant]
  8. POTASSIUM GLUCONATE [Concomitant]
     Active Substance: POTASSIUM GLUCONATE
  9. ABILIFY [Suspect]
     Active Substance: ARIPIPRAZOLE
     Dosage: DOSE - 1 VIAL?ROUTE - INJECTION
  10. SUPPLEMENTS [Concomitant]
     Active Substance: UNSPECIFIED INGREDIENT

REACTIONS (3)
  - Nervous system disorder [None]
  - Pain [None]
  - Feeling hot [None]

NARRATIVE: CASE EVENT DATE: 20171003
